FAERS Safety Report 15570216 (Version 3)
Quarter: 2019Q1

REPORT INFORMATION
  Report Type: Report from Study
  Country: GB (occurrence: GB)
  Receive Date: 20181031
  Receipt Date: 20190131
  Transmission Date: 20190417
  Serious: Yes (Other)
  Sender: FDA-Public Use
  Company Number: PHHY2018GB141839

PATIENT
  Sex: Female

DRUGS (2)
  1. COSENTYX [Suspect]
     Active Substance: SECUKINUMAB
     Indication: PSORIATIC ARTHROPATHY
     Dosage: 150 MG, UNK (ON WEEKS 0, 1, 2 AND 3 THEN ONCE MONTHLY)
     Route: 058
     Dates: start: 20180911
  2. COSENTYX [Suspect]
     Active Substance: SECUKINUMAB
     Dosage: 150 MG, QMO
     Route: 058

REACTIONS (8)
  - Lower respiratory tract infection [Unknown]
  - Ill-defined disorder [Unknown]
  - Pain [Unknown]
  - Bipolar disorder [Unknown]
  - Malaise [Unknown]
  - Cold sweat [Unknown]
  - Headache [Unknown]
  - Oropharyngeal pain [Unknown]
